FAERS Safety Report 5373023-6 (Version None)
Quarter: 2007Q2

REPORT INFORMATION
  Report Type: 
  Country: None (occurrence: None)
  Receive Date: 20070619
  Receipt Date: 20070425
  Transmission Date: 20071010
  Serious: No
  Sender: FDA-Public Use
  Company Number: 2007US000786

PATIENT
  Age: 84 Year
  Sex: Male

DRUGS (2)
  1. VESICARE [Suspect]
     Indication: DRUG USE FOR UNKNOWN INDICATION
     Dosage: 5 MG, BID, ORAL
     Route: 048
     Dates: start: 20070201
  2. PAXIL [Concomitant]

REACTIONS (4)
  - CONSTIPATION [None]
  - COUGH [None]
  - PULMONARY CONGESTION [None]
  - RHINORRHOEA [None]
